FAERS Safety Report 5783002-2 (Version None)
Quarter: 2008Q2

REPORT INFORMATION
  Report Type: 
  Country: None (occurrence: None)
  Receive Date: 20080619
  Receipt Date: 20080619
  Transmission Date: 20081010
  Serious: Yes (Death)
  Sender: FDA-Public Use
  Company Number: None

PATIENT
  Age: 39 Year
  Sex: Female
  Weight: 42.5 kg

DRUGS (3)
  1. EMTRIVA [Suspect]
     Indication: HIV INFECTION
     Dosage: 200 MG QD ORAL
     Route: 048
     Dates: start: 20071108, end: 20080521
  2. VIRAMUNE [Suspect]
     Indication: HIV INFECTION
     Dosage: 200 MG BID ORAL
     Route: 048
     Dates: start: 20071108, end: 20080521
  3. VIDEX [Suspect]
     Indication: HIV INFECTION
     Dosage: 250 MG QD ORAL
     Route: 048
     Dates: start: 20071217, end: 20080521

REACTIONS (17)
  - ACUTE PRERENAL FAILURE [None]
  - ALANINE AMINOTRANSFERASE INCREASED [None]
  - ANAEMIA [None]
  - ASPARTATE AMINOTRANSFERASE INCREASED [None]
  - ASTHENIA [None]
  - BLOOD CALCIUM DECREASED [None]
  - EXFOLIATIVE RASH [None]
  - FANCONI SYNDROME [None]
  - GASTROENTERITIS [None]
  - HEADACHE [None]
  - HYPOALBUMINAEMIA [None]
  - MALNUTRITION [None]
  - OEDEMA PERIPHERAL [None]
  - PITTING OEDEMA [None]
  - PNEUMONIA [None]
  - SKIN HYPERPIGMENTATION [None]
  - SWELLING FACE [None]
